FAERS Safety Report 9183490 (Version 1)
Quarter: 2013Q1

REPORT INFORMATION
  Report Type: Spontaneous
  Country: US (occurrence: US)
  Receive Date: 20130322
  Receipt Date: 20130322
  Transmission Date: 20140127
  Serious: No
  Sender: FDA-Public Use
  Company Number: US-BRISTOL-MYERS SQUIBB COMPANY-16432494

PATIENT
  Age: 78 Year
  Sex: Female
  Weight: 63 kg

DRUGS (1)
  1. ERBITUX [Suspect]
     Dosage: NO OF DOSES:6
     Dates: start: 20120104

REACTIONS (5)
  - Headache [Unknown]
  - Hair growth abnormal [Unknown]
  - Dry skin [Unknown]
  - Weight decreased [Unknown]
  - Eye discharge [Unknown]
